FAERS Safety Report 8069133-5 (Version None)
Quarter: 2012Q1

REPORT INFORMATION
  Report Type: 
  Country: None (occurrence: None)
  Receive Date: 20120125
  Receipt Date: 20120113
  Transmission Date: 20120608
  Serious: Yes (Other)
  Sender: FDA-Public Use
  Company Number: DK-JNJFOC-20120107527

PATIENT
  Sex: Female

DRUGS (3)
  1. REMICADE [Suspect]
     Indication: RHEUMATOID ARTHRITIS
     Dosage: 0, 2, 6 AND 8
     Route: 042
     Dates: start: 20110527, end: 20111222
  2. ALL OTHER THERAPEUTICS [Concomitant]
     Route: 065
     Dates: start: 20100525, end: 20110526
  3. METHOTREXATE [Concomitant]
     Route: 065
     Dates: start: 20090525, end: 20111222

REACTIONS (3)
  - CHEST DISCOMFORT [None]
  - FLUSHING [None]
  - DYSPNOEA [None]
